FAERS Safety Report 19971435 (Version 2)
Quarter: 2022Q2

REPORT INFORMATION
  Report Type: Spontaneous
  Country: JP (occurrence: JP)
  Receive Date: 20211019
  Receipt Date: 20220406
  Transmission Date: 20220720
  Serious: Yes (Death, Hospitalization, Other)
  Sender: FDA-Public Use
  Company Number: JP-TAKEDA-2021TJP105546

PATIENT
  Age: 50 Year
  Sex: Female
  Weight: 47.6 kg

DRUGS (14)
  1. ZEJULA [Suspect]
     Active Substance: NIRAPARIB
     Indication: Ovarian cancer stage III
     Dosage: 200 MILLIGRAM, QD
     Route: 048
     Dates: start: 20210112, end: 20210201
  2. ZEJULA [Suspect]
     Active Substance: NIRAPARIB
     Dosage: 100 MILLIGRAM, QD
     Route: 048
     Dates: start: 20210216, end: 20210411
  3. CARBOPLATIN [Suspect]
     Active Substance: CARBOPLATIN
     Indication: Ovarian cancer stage III
     Dosage: 600 MILLIGRAM, QD
     Route: 041
     Dates: start: 20170607, end: 20170928
  4. CARBOPLATIN [Suspect]
     Active Substance: CARBOPLATIN
     Dosage: 600 MILLIGRAM, QD
     Route: 041
     Dates: start: 20180529, end: 20180710
  5. CARBOPLATIN [Suspect]
     Active Substance: CARBOPLATIN
     Dosage: 600 MILLIGRAM, QD
     Route: 041
     Dates: start: 20190910, end: 20191030
  6. CARBOPLATIN [Suspect]
     Active Substance: CARBOPLATIN
     Dosage: 600 MILLIGRAM, QD
     Route: 041
     Dates: start: 20191125, end: 20200127
  7. CARBOPLATIN [Suspect]
     Active Substance: CARBOPLATIN
     Dosage: 600 MILLIGRAM, QD
     Route: 041
     Dates: start: 20200309, end: 20201126
  8. CARBOPLATIN [Suspect]
     Active Substance: CARBOPLATIN
     Dosage: 600 MILLIGRAM, QD
     Route: 041
     Dates: start: 20210510, end: 20210607
  9. TAXOL [Suspect]
     Active Substance: PACLITAXEL
     Indication: Ovarian cancer stage III
     Dosage: 200 MILLIGRAM, QD
     Route: 041
     Dates: start: 20170607, end: 20170928
  10. TAXOL [Suspect]
     Active Substance: PACLITAXEL
     Dosage: 200 MILLIGRAM, QD
     Route: 041
     Dates: start: 20180529, end: 20180710
  11. TAXOL [Suspect]
     Active Substance: PACLITAXEL
     Dosage: 200 MILLIGRAM, QD
     Route: 041
     Dates: start: 20190910, end: 20191030
  12. TAXOL [Suspect]
     Active Substance: PACLITAXEL
     Dosage: 200 MILLIGRAM, QD
     Route: 041
     Dates: start: 20210510, end: 20210607
  13. DICLOXACILLIN [Suspect]
     Active Substance: DICLOXACILLIN
     Indication: Ovarian cancer stage III
     Dosage: 40 MILLIGRAM, QD
     Route: 041
     Dates: start: 20200309, end: 20201126
  14. GEMCITABINE HYDROCHLORIDE [Suspect]
     Active Substance: GEMCITABINE HYDROCHLORIDE
     Indication: Ovarian cancer stage III
     Dosage: 800 MILLIGRAM, QD
     Route: 041
     Dates: start: 20191125, end: 20200127

REACTIONS (6)
  - Ovarian cancer [Fatal]
  - Acute myeloid leukaemia [Not Recovered/Not Resolved]
  - Metastasis [Unknown]
  - Malignant ascites [Unknown]
  - Condition aggravated [Unknown]
  - Pancytopenia [Unknown]

NARRATIVE: CASE EVENT DATE: 20210315
